FAERS Safety Report 10426691 (Version 2)
Quarter: 2014Q4

REPORT INFORMATION
  Report Type: Spontaneous
  Country: US (occurrence: None)
  Receive Date: 20140722
  Receipt Date: 20141020
  Transmission Date: 20150528
  Serious: No
  Sender: FDA-Public Use
  Company Number: AEGR000537

PATIENT
  Age: 47 Year
  Sex: Female
  Weight: 76.2 kg

DRUGS (3)
  1. OMEGA 3-6-9 (FISH OIL, TOCOPHEROL) [Concomitant]
  2. VITAMIN E (TOCOPHERYL ACETATE) [Concomitant]
  3. JUXTAPID [Suspect]
     Active Substance: LOMITAPIDE MESYLATE
     Indication: TYPE IIA HYPERLIPIDAEMIA
     Route: 048
     Dates: start: 20130225

REACTIONS (2)
  - Nausea [None]
  - Weight fluctuation [None]

NARRATIVE: CASE EVENT DATE: 201408
